FAERS Safety Report 9427785 (Version 1)
Quarter: 2013Q3

REPORT INFORMATION
  Report Type: Spontaneous
  Country: US (occurrence: US)
  Receive Date: 20130730
  Receipt Date: 20130730
  Transmission Date: 20140515
  Serious: No
  Sender: FDA-Public Use
  Company Number: US-ABBOTT-12P-163-0989157-00

PATIENT
  Age: 85 Year
  Sex: Male
  Weight: 72.64 kg

DRUGS (6)
  1. NIASPAN (COATED) [Suspect]
     Indication: BLOOD CHOLESTEROL ABNORMAL
     Dates: start: 20120702, end: 20120925
  2. BABY ASPIRIN [Concomitant]
     Indication: PRODUCT USED FOR UNKNOWN INDICATION
  3. VIT C [Concomitant]
     Indication: PRODUCT USED FOR UNKNOWN INDICATION
  4. VIT D [Concomitant]
     Indication: PRODUCT USED FOR UNKNOWN INDICATION
  5. COLACE [Concomitant]
     Indication: PRODUCT USED FOR UNKNOWN INDICATION
  6. OXYCODONE [Concomitant]
     Indication: RESTLESS LEGS SYNDROME

REACTIONS (2)
  - Abdominal discomfort [Unknown]
  - Dizziness [Unknown]
